FAERS Safety Report 4316500-9 (Version None)
Quarter: 2004Q1

REPORT INFORMATION
  Report Type: 
  Country: None (occurrence: None)
  Receive Date: 20040312
  Receipt Date: 20031209
  Transmission Date: 20041129
  Serious: Yes (Hospitalization, Disabling)
  Sender: FDA-Public Use
  Company Number: WAES 0312USA00993

PATIENT
  Age: 33 Year
  Sex: Male
  Weight: 93 kg

DRUGS (6)
  1. TYLENOL (CAPLET) [Concomitant]
     Indication: HEADACHE
     Dates: start: 19950101, end: 20011217
  2. TYLENOL (CAPLET) [Concomitant]
     Indication: PAIN
     Dates: start: 19950101, end: 20011217
  3. ADVIL [Concomitant]
     Indication: HEADACHE
     Dates: start: 19950101, end: 20011217
  4. ADVIL [Concomitant]
     Indication: PAIN
     Dates: start: 19950101, end: 20011217
  5. VIOXX [Suspect]
     Indication: BACK PAIN
     Route: 048
     Dates: start: 20011201, end: 20011217
  6. IMITREX [Concomitant]
     Indication: MIGRAINE
     Dates: start: 19950101, end: 20011217

REACTIONS (11)
  - ACUTE MYOCARDIAL INFARCTION [None]
  - BRADYCARDIA [None]
  - CORONARY ARTERY DISEASE [None]
  - CORONARY ARTERY STENOSIS [None]
  - DEPRESSION [None]
  - EMOTIONAL DISTRESS [None]
  - FATIGUE [None]
  - GASTROOESOPHAGEAL REFLUX DISEASE [None]
  - HYPOTENSION [None]
  - URINARY RETENTION [None]
  - VENTRICULAR TACHYCARDIA [None]
